FAERS Safety Report 7625677-9 (Version None)
Quarter: 2011Q3

REPORT INFORMATION
  Report Type: 
  Country: None (occurrence: None)
  Receive Date: 20110713
  Receipt Date: 20110703
  Transmission Date: 20111222
  Serious: Yes (Hospitalization, Other)
  Sender: FDA-Public Use
  Company Number: CL-323-2011

PATIENT
  Age: 4 Year
  Sex: Female
  Weight: 23 kg

DRUGS (2)
  1. VERSED [Suspect]
     Indication: SEDATION
     Dosage: 1 MG TWICE, INTRAVENOUSLY
     Route: 042
  2. KETAMINE HCL [Suspect]
     Indication: SEDATION
     Dosage: 20MG TWICE INTRAVENOUSLY
     Route: 042

REACTIONS (2)
  - DRUG INTERACTION [None]
  - ARRHYTHMIA [None]
